FAERS Safety Report 17913667 (Version 1)
Quarter: 2020Q2

REPORT INFORMATION
  Report Type: Spontaneous
  Country: US (occurrence: US)
  Receive Date: 20200618
  Receipt Date: 20200618
  Transmission Date: 20200714
  Serious: Yes (Other)
  Sender: FDA-Public Use
  Company Number: US-JNJFOC-20200621669

PATIENT
  Age: 30 Year
  Sex: Female

DRUGS (1)
  1. PARACETAMOL [Suspect]
     Active Substance: ACETAMINOPHEN
     Indication: PRODUCT USED FOR UNKNOWN INDICATION
     Dosage: GREATER THAN 10 G/D APAP
     Route: 065

REACTIONS (2)
  - Acute hepatic failure [Recovered/Resolved]
  - Overdose [Recovered/Resolved]
